FAERS Safety Report 9412139 (Version 1)
Quarter: 2013Q3

REPORT INFORMATION
  Report Type: Report from Study
  Country: DE (occurrence: DE)
  Receive Date: 20130722
  Receipt Date: 20130722
  Transmission Date: 20140515
  Serious: Yes (Hospitalization)
  Sender: FDA-Public Use
  Company Number: DE-ROCHE-1241032

PATIENT
  Age: 65 Year
  Sex: Female
  Weight: 75 kg

DRUGS (2)
  1. BEVACIZUMAB [Suspect]
     Indication: OVARIAN CANCER
     Route: 065
  2. CLEXANE [Concomitant]
     Indication: PROPHYLAXIS
     Route: 058
     Dates: start: 201202

REACTIONS (2)
  - Back pain [Recovered/Resolved]
  - Pathological fracture [Recovered/Resolved]
